FAERS Safety Report 25859243 (Version 1)
Quarter: 2025Q3

REPORT INFORMATION
  Report Type: Spontaneous
  Country: US (occurrence: US)
  Receive Date: 20250929
  Receipt Date: 20250929
  Transmission Date: 20251020
  Serious: Yes (Hospitalization, Other)
  Sender: PFIZER
  Company Number: US-PFIZER INC-PV202500115242

PATIENT
  Age: 67 Year
  Sex: Male
  Weight: 74.286 kg

DRUGS (47)
  1. OXALIPLATIN [Suspect]
     Active Substance: OXALIPLATIN
     Indication: Colorectal cancer metastatic
     Dates: start: 20221107
  2. OXALIPLATIN [Suspect]
     Active Substance: OXALIPLATIN
     Dates: start: 20221121
  3. OXALIPLATIN [Suspect]
     Active Substance: OXALIPLATIN
     Dates: start: 20221205
  4. OXALIPLATIN [Suspect]
     Active Substance: OXALIPLATIN
     Dates: start: 20221219
  5. OXALIPLATIN [Suspect]
     Active Substance: OXALIPLATIN
     Dates: start: 20221228
  6. OXALIPLATIN [Suspect]
     Active Substance: OXALIPLATIN
     Dates: start: 20230116
  7. OXALIPLATIN [Suspect]
     Active Substance: OXALIPLATIN
     Dates: start: 20230206
  8. OXALIPLATIN [Suspect]
     Active Substance: OXALIPLATIN
     Dates: start: 20230220
  9. OXALIPLATIN [Suspect]
     Active Substance: OXALIPLATIN
     Dates: start: 20230306
  10. OXALIPLATIN [Suspect]
     Active Substance: OXALIPLATIN
     Dates: start: 20230327
  11. OXALIPLATIN [Suspect]
     Active Substance: OXALIPLATIN
     Dates: start: 20230410
  12. OXALIPLATIN [Suspect]
     Active Substance: OXALIPLATIN
     Dates: start: 20230501
  13. LEUCOVORIN [Suspect]
     Active Substance: LEUCOVORIN\LEUCOVORIN CALCIUM
     Indication: Colorectal cancer metastatic
     Dates: start: 20221107
  14. LEUCOVORIN [Suspect]
     Active Substance: LEUCOVORIN\LEUCOVORIN CALCIUM
     Dates: start: 20221121
  15. LEUCOVORIN [Suspect]
     Active Substance: LEUCOVORIN\LEUCOVORIN CALCIUM
     Dates: start: 20221205
  16. LEUCOVORIN [Suspect]
     Active Substance: LEUCOVORIN\LEUCOVORIN CALCIUM
     Dates: start: 20221219
  17. LEUCOVORIN [Suspect]
     Active Substance: LEUCOVORIN\LEUCOVORIN CALCIUM
     Dates: start: 20221228
  18. LEUCOVORIN [Suspect]
     Active Substance: LEUCOVORIN\LEUCOVORIN CALCIUM
     Dates: start: 20230116
  19. LEUCOVORIN [Suspect]
     Active Substance: LEUCOVORIN\LEUCOVORIN CALCIUM
     Dates: start: 20230206
  20. LEUCOVORIN [Suspect]
     Active Substance: LEUCOVORIN\LEUCOVORIN CALCIUM
     Dates: start: 20230220
  21. LEUCOVORIN [Suspect]
     Active Substance: LEUCOVORIN\LEUCOVORIN CALCIUM
     Dates: start: 20230306
  22. LEUCOVORIN [Suspect]
     Active Substance: LEUCOVORIN\LEUCOVORIN CALCIUM
     Dates: start: 20230327
  23. LEUCOVORIN [Suspect]
     Active Substance: LEUCOVORIN\LEUCOVORIN CALCIUM
     Dates: start: 20230410
  24. LEUCOVORIN [Suspect]
     Active Substance: LEUCOVORIN\LEUCOVORIN CALCIUM
     Dates: start: 20230501
  25. FLUOROURACIL [Suspect]
     Active Substance: FLUOROURACIL
     Indication: Colorectal cancer metastatic
     Dates: start: 20221107
  26. FLUOROURACIL [Suspect]
     Active Substance: FLUOROURACIL
     Dates: start: 20221121
  27. FLUOROURACIL [Suspect]
     Active Substance: FLUOROURACIL
     Dates: start: 20221205
  28. FLUOROURACIL [Suspect]
     Active Substance: FLUOROURACIL
     Dates: start: 20221219
  29. FLUOROURACIL [Suspect]
     Active Substance: FLUOROURACIL
     Dates: start: 20221228
  30. FLUOROURACIL [Suspect]
     Active Substance: FLUOROURACIL
     Dates: start: 20230206
  31. FLUOROURACIL [Suspect]
     Active Substance: FLUOROURACIL
     Dates: start: 20230220
  32. FLUOROURACIL [Suspect]
     Active Substance: FLUOROURACIL
     Dates: start: 20230306
  33. FLUOROURACIL [Suspect]
     Active Substance: FLUOROURACIL
     Dates: start: 20230327
  34. FLUOROURACIL [Suspect]
     Active Substance: FLUOROURACIL
     Dates: start: 20230410
  35. FLUOROURACIL [Suspect]
     Active Substance: FLUOROURACIL
     Dates: start: 20230501
  36. FLUOROURACIL [Suspect]
     Active Substance: FLUOROURACIL
     Dates: start: 20230522, end: 20240108
  37. AVASTIN [Suspect]
     Active Substance: BEVACIZUMAB
     Indication: Colorectal cancer metastatic
     Dates: start: 20221205
  38. AVASTIN [Suspect]
     Active Substance: BEVACIZUMAB
     Dates: start: 20221219
  39. AVASTIN [Suspect]
     Active Substance: BEVACIZUMAB
     Dates: start: 20221228
  40. AVASTIN [Suspect]
     Active Substance: BEVACIZUMAB
     Dates: start: 20230116
  41. AVASTIN [Suspect]
     Active Substance: BEVACIZUMAB
     Dates: start: 20230206
  42. AVASTIN [Suspect]
     Active Substance: BEVACIZUMAB
     Dates: start: 20230220
  43. AVASTIN [Suspect]
     Active Substance: BEVACIZUMAB
     Dates: start: 20230306
  44. AVASTIN [Suspect]
     Active Substance: BEVACIZUMAB
     Dates: start: 20230327
  45. AVASTIN [Suspect]
     Active Substance: BEVACIZUMAB
     Dates: start: 20230410
  46. AVASTIN [Suspect]
     Active Substance: BEVACIZUMAB
     Dates: start: 20230501
  47. AVASTIN [Suspect]
     Active Substance: BEVACIZUMAB
     Dates: start: 20230522, end: 20240108

REACTIONS (13)
  - Acute kidney injury [Recovered/Resolved]
  - Asthenia [Unknown]
  - Dental operation [Unknown]
  - Colorectal cancer metastatic [Unknown]
  - Malignant neoplasm progression [Unknown]
  - Hydronephrosis [Not Recovered/Not Resolved]
  - Condition aggravated [Not Recovered/Not Resolved]
  - Ureteric obstruction [Unknown]
  - Compression fracture [Unknown]
  - Body height decreased [Unknown]
  - Atelectasis [Unknown]
  - Gastrointestinal stoma complication [Unknown]
  - Hypovolaemia [Unknown]

NARRATIVE: CASE EVENT DATE: 20221227
